FAERS Safety Report 11558163 (Version 1)
Quarter: 2015Q3

REPORT INFORMATION
  Report Type: Report from Study
  Country: US (occurrence: US)
  Receive Date: 20150928
  Receipt Date: 20150928
  Transmission Date: 20151125
  Serious: No
  Sender: FDA-Public Use
  Company Number: US-AMGEN-USASL2015097633

PATIENT
  Sex: Female

DRUGS (1)
  1. ENBREL [Suspect]
     Active Substance: ETANERCEPT
     Indication: PSORIATIC ARTHROPATHY
     Dosage: 25 MG, 2 TIMES/WK
     Route: 065
     Dates: start: 2009

REACTIONS (6)
  - Condition aggravated [Unknown]
  - Arthritis [Unknown]
  - Stress [Unknown]
  - Therapeutic response decreased [Unknown]
  - Skin disorder [Recovering/Resolving]
  - Intentional product misuse [Unknown]
